FAERS Safety Report 7780614-1 (Version None)
Quarter: 2011Q3

REPORT INFORMATION
  Report Type: 
  Country: None (occurrence: None)
  Receive Date: 20110927
  Receipt Date: 20100930
  Transmission Date: 20111222
  Serious: No
  Sender: FDA-Public Use
  Company Number: US-BRISTOL-MYERS SQUIBB COMPANY-15319130

PATIENT
  Age: 70 Year
  Sex: Female

DRUGS (7)
  1. AVALIDE [Suspect]
     Indication: BLOOD PRESSURE
  2. HYDROCHLOROTHIAZIDE [Suspect]
     Indication: BLOOD PRESSURE
  3. HUMALOG [Suspect]
     Indication: TYPE 2 DIABETES MELLITUS
     Dosage: HUMALOG PEN
  4. AVAPRO [Suspect]
  5. MAXIDEX [Suspect]
  6. LANTUS [Suspect]
     Indication: TYPE 2 DIABETES MELLITUS
     Dosage: LANTUS SOLOSTAR 1 DF:15UNITS START DT:1 MONTH DEVICE DURAT:TWICE NEEDLE SIZE AND BRAND:BD 5MM
  7. FELODIPINE [Suspect]
     Indication: BLOOD PRESSURE

REACTIONS (1)
  - URTICARIA [None]
